FAERS Safety Report 8234019-X (Version None)
Quarter: 2012Q1

REPORT INFORMATION
  Report Type: 
  Country: None (occurrence: None)
  Receive Date: 20120326
  Receipt Date: 20120313
  Transmission Date: 20120608
  Serious: No
  Sender: FDA-Public Use
  Company Number: JP-NAPPMUNDI-MAG-2012-0002074

PATIENT
  Sex: Male

DRUGS (10)
  1. GOSHAJINKIGAN [Concomitant]
     Dosage: 7.5 G, DAILY
     Route: 048
     Dates: start: 20120206, end: 20120226
  2. OXYCODONE HCL [Suspect]
     Indication: CANCER PAIN
     Dosage: 5 MG, BID
     Route: 048
     Dates: start: 20120215, end: 20120216
  3. AMLODIPINE [Concomitant]
     Dosage: 5 MG, DAILY
     Route: 048
  4. KRESTIN [Concomitant]
     Dosage: 3 G, DAILY
     Route: 048
     Dates: start: 20120123, end: 20120221
  5. BROTIZOLAM [Concomitant]
     Dosage: 0.25 MG, DAILY
     Route: 048
     Dates: start: 20120308
  6. LANSOPRAZOLE [Concomitant]
     Dosage: 15 MG, DAILY
     Route: 048
     Dates: start: 20120123, end: 20120219
  7. ASPIRIN [Concomitant]
     Dosage: 100 MG, DAILY
     Route: 048
  8. MAGNESIUM OXIDE [Concomitant]
     Dosage: 5940 MG, DAILY
     Route: 048
     Dates: start: 20120222
  9. OXYCODONE HCL [Suspect]
     Indication: CANCER PAIN
     Dosage: 2.5 MG, 2-4 TIMES DAILY
     Route: 048
     Dates: start: 20120215, end: 20120216
  10. MINIPLANOR [Concomitant]
     Dosage: 200 MG, DAILY
     Route: 048

REACTIONS (1)
  - PERINEAL PAIN [None]
